FAERS Safety Report 5315543-6 (Version None)
Quarter: 2007Q2

REPORT INFORMATION
  Report Type: 
  Country: None (occurrence: None)
  Receive Date: 20070501
  Receipt Date: 20070501
  Transmission Date: 20071010
  Serious: No
  Sender: FDA-Public Use
  Company Number: None

PATIENT
  Age: 8 Month
  Sex: Female
  Weight: 7.2576 kg

DRUGS (1)
  1. AMOXICILLIN [Suspect]
     Indication: EAR INFECTION
     Dosage: 1/2 TSP TWICE A DAY PO
     Route: 048
     Dates: start: 20060426, end: 20060428

REACTIONS (2)
  - ABDOMINAL PAIN [None]
  - FLATULENCE [None]
